FAERS Safety Report 7095998-X (Version None)
Quarter: 2010Q4

REPORT INFORMATION
  Report Type: 
  Country: None (occurrence: None)
  Receive Date: 20101111
  Receipt Date: 20090601
  Transmission Date: 20110411
  Serious: No
  Sender: FDA-Public Use
  Company Number: US-KINGPHARMUSA00001-K200900661

PATIENT
  Age: 84 Year
  Sex: Male

DRUGS (3)
  1. SEPTRA [Suspect]
     Indication: URINARY TRACT INFECTION
     Dosage: UNK
     Route: 048
  2. VOLTAREN [Suspect]
     Indication: OSTEOARTHRITIS
     Route: 061
  3. CELEBREX [Concomitant]

REACTIONS (3)
  - FATIGUE [None]
  - LETHARGY [None]
  - NAUSEA [None]
